FAERS Safety Report 14053451 (Version 2)
Quarter: 2018Q2

REPORT INFORMATION
  Report Type: Report from Study
  Country: US (occurrence: US)
  Receive Date: 20171005
  Receipt Date: 20180404
  Transmission Date: 20180711
  Serious: No
  Sender: FDA-Public Use
  Company Number: US-AMGEN-USASL2016182577

PATIENT
  Age: 70 Year
  Sex: Female

DRUGS (3)
  1. PROLIA [Suspect]
     Active Substance: DENOSUMAB
     Indication: BONE DISORDER
     Dosage: 60 MG, Q6MO
     Route: 058
  2. PROLIA [Suspect]
     Active Substance: DENOSUMAB
     Indication: AROMATASE INHIBITION THERAPY
  3. PROLIA [Suspect]
     Active Substance: DENOSUMAB
     Indication: BREAST CANCER FEMALE

REACTIONS (1)
  - Off label use [Unknown]
